FAERS Safety Report 9079061 (Version 1)
Quarter: 2013Q1

REPORT INFORMATION
  Report Type: Report from Study
  Country: US (occurrence: US)
  Receive Date: 20130130
  Receipt Date: 20130130
  Transmission Date: 20140127
  Serious: No
  Sender: FDA-Public Use
  Company Number: US-ABBOTT-12P-163-0956743-00

PATIENT
  Age: 48 Year
  Sex: Female

DRUGS (3)
  1. HUMIRA 40 MG/0.8 ML PEN [Suspect]
     Indication: RHEUMATOID ARTHRITIS
  2. METHOTREXATE [Concomitant]
     Indication: PRODUCT USED FOR UNKNOWN INDICATION
     Dosage: 4 TABS WEEKLY
  3. ASACOL [Concomitant]
     Indication: COLITIS ULCERATIVE
     Dosage: 2400MG = 3 800MG TABS EVERY MORNING

REACTIONS (1)
  - Injection site haemorrhage [Not Recovered/Not Resolved]
